FAERS Safety Report 9571491 (Version 1)
Quarter: 2013Q4

REPORT INFORMATION
  Report Type: Spontaneous
  Country: US (occurrence: US)
  Receive Date: 20131001
  Receipt Date: 20131001
  Transmission Date: 20140711
  Serious: No
  Sender: FDA-Public Use
  Company Number: US-PFIZER INC-2013276311

PATIENT
  Age: 30 Year
  Sex: Female
  Weight: 73.92 kg

DRUGS (1)
  1. CELEBREX [Suspect]
     Indication: HEADACHE
     Dosage: 200 MG, 2X/DAY
     Route: 048
     Dates: start: 20130917

REACTIONS (3)
  - Off label use [Unknown]
  - Headache [Unknown]
  - Therapeutic response unexpected [Unknown]
